FAERS Safety Report 7629630-0 (Version None)
Quarter: 2011Q3

REPORT INFORMATION
  Report Type: 
  Country: None (occurrence: None)
  Receive Date: 20110722
  Receipt Date: 20110713
  Transmission Date: 20111222
  Serious: Yes (Other)
  Sender: FDA-Public Use
  Company Number: US-JNJFOC-20110706412

PATIENT
  Sex: Female

DRUGS (7)
  1. UNKNOWN MEDICATION [Concomitant]
     Route: 065
  2. IMODIUM MULTI-SYMPTOM RELIEF [Suspect]
     Route: 048
  3. EXTRA STRENGTH TYLENOL [Suspect]
     Indication: PRODUCT USED FOR UNKNOWN INDICATION
     Route: 048
  4. SUDAFED CONGESTION MAXIMUM STRENGTH [Suspect]
     Indication: UNEVALUABLE EVENT
     Route: 048
  5. ADVIL [Suspect]
     Indication: PRODUCT USED FOR UNKNOWN INDICATION
     Route: 065
  6. EXTRA STRENGTH TYLENOL [Suspect]
     Route: 048
  7. IMODIUM MULTI-SYMPTOM RELIEF [Suspect]
     Indication: DIARRHOEA
     Route: 048

REACTIONS (1)
  - URTICARIA [None]
